FAERS Safety Report 20739511 (Version 2)
Quarter: 2023Q4

REPORT INFORMATION
  Report Type: Report from Study
  Country: US (occurrence: US)
  Receive Date: 20220422
  Receipt Date: 20231212
  Transmission Date: 20240110
  Serious: Yes (Hospitalization, Other)
  Sender: FDA-Public Use
  Company Number: US-JAZZ-2022-US-011668

PATIENT
  Sex: Male

DRUGS (2)
  1. EPIDIOLEX [Suspect]
     Active Substance: CANNABIDIOL
     Indication: Lennox-Gastaut syndrome
     Dosage: 14.6 MILLILITER
     Route: 048
     Dates: start: 202007
  2. EPIDIOLEX [Suspect]
     Active Substance: CANNABIDIOL
     Dosage: 7.3 MILLILITER, BID
     Route: 048
     Dates: start: 201906

REACTIONS (3)
  - Seizure [Unknown]
  - Seizure [Recovered/Resolved]
  - Product administration interrupted [Unknown]
